FAERS Safety Report 19448789 (Version 3)
Quarter: 2023Q4

REPORT INFORMATION
  Report Type: Spontaneous
  Country: US (occurrence: US)
  Receive Date: 20210622
  Receipt Date: 20231106
  Transmission Date: 20240109
  Serious: Yes (Other)
  Sender: FDA-Public Use
  Company Number: US-GSKCCFUS-CASE-01087480_AE-64210

PATIENT
  Age: 61 Year
  Sex: Female

DRUGS (2)
  1. BENLYSTA [Suspect]
     Active Substance: BELIMUMAB
     Indication: Systemic lupus erythematosus
     Dosage: UNK (WAS ON PRODUCT FROM 2 YEARS)
     Route: 058
     Dates: start: 20200603
  2. BENLYSTA [Suspect]
     Active Substance: BELIMUMAB
     Indication: Asthma

REACTIONS (11)
  - Pneumonia [Unknown]
  - Dyspnoea [Recovered/Resolved]
  - Feeling hot [Recovered/Resolved]
  - Hypoaesthesia [Recovered/Resolved]
  - Blood pressure abnormal [Recovered/Resolved]
  - Panic attack [Recovered/Resolved]
  - Oropharyngeal pain [Unknown]
  - Cough [Unknown]
  - Bronchitis [Unknown]
  - Aphonia [Unknown]
  - Product storage error [Unknown]

NARRATIVE: CASE EVENT DATE: 20200603
